FAERS Safety Report 5049495-3 (Version None)
Quarter: 2006Q3

REPORT INFORMATION
  Report Type: 
  Country: None (occurrence: None)
  Receive Date: 20060712
  Receipt Date: 20060616
  Transmission Date: 20061208
  Serious: Yes (Other)
  Sender: FDA-Public Use
  Company Number: GB-GLAXOSMITHKLINE-B0428083A

PATIENT
  Age: 36 Year
  Sex: Female

DRUGS (4)
  1. NIQUITIN CQ 2MG LOZENGE [Suspect]
     Dosage: 2MG SEE DOSAGE TEXT
     Route: 002
     Dates: start: 20040601
  2. BOOTS NICASSIST 1MG LOZENGE [Suspect]
     Dosage: 1MG UNKNOWN
     Route: 002
  3. HOMEOPATHIC REMEDY [Concomitant]
  4. MANDRAKE ROOT [Concomitant]

REACTIONS (4)
  - DEPENDENCE [None]
  - HEADACHE [None]
  - INTENTIONAL DRUG MISUSE [None]
  - MALAISE [None]
